FAERS Safety Report 14025104 (Version 10)
Quarter: 2019Q4

REPORT INFORMATION
  Report Type: Spontaneous
  Country: KR (occurrence: KR)
  Receive Date: 20170929
  Receipt Date: 20191206
  Transmission Date: 20200122
  Serious: Yes (Death, Hospitalization, Other)
  Sender: FDA-Public Use
  Company Number: KR-009507513-1709KOR012990

PATIENT
  Age: 44 Year
  Sex: Male

DRUGS (17)
  1. SMOFKABIVEN PERIPHERAL [Concomitant]
     Indication: PROPHYLAXIS
     Dosage: 1448 ML, QD
     Route: 042
     Dates: start: 20170821, end: 20170829
  2. VIDAZA [Concomitant]
     Active Substance: AZACITIDINE
     Dosage: 125 MILLIGRAM, QD
     Route: 058
     Dates: start: 20170821, end: 20170821
  3. VIDAZA [Concomitant]
     Active Substance: AZACITIDINE
     Indication: MYELODYSPLASTIC SYNDROME
     Dosage: 125 MILLIGRAM, QD
     Route: 058
     Dates: start: 20170817, end: 20170818
  4. NOXAFIL [Suspect]
     Active Substance: POSACONAZOLE
     Indication: ANTIFUNGAL PROPHYLAXIS
     Dosage: 300 MILLIGRAM, TWICE A DAY
     Route: 048
     Dates: start: 20170726, end: 20170726
  5. NOXAFIL [Suspect]
     Active Substance: POSACONAZOLE
     Dosage: 300 MILLIGRAM, ONCE A DAY
     Route: 048
     Dates: start: 20170727, end: 20170903
  6. HEXAMEDINE [Concomitant]
     Indication: TONSILLITIS
     Dosage: FORMULATION: SOLUTION, 250 MILLILITER, PRN
     Route: 061
     Dates: start: 20170821, end: 20170821
  7. SMOFKABIVEN PERIPHERAL [Concomitant]
     Dosage: 1206 ML, QD
     Route: 042
     Dates: start: 20170904, end: 20170907
  8. CURAN [Concomitant]
     Active Substance: RANITIDINE HYDROCHLORIDE
     Indication: GASTRITIS PROPHYLAXIS
     Dosage: 75 MILLIGRAM, BID
     Route: 048
     Dates: start: 20170812, end: 20170909
  9. GASMOTIN [Concomitant]
     Active Substance: MOSAPRIDE CITRATE
     Indication: GASTRITIS PROPHYLAXIS
     Dosage: 5 MILLIGRAM, BID
     Route: 048
     Dates: start: 20170802, end: 20170810
  10. PLAKON [Concomitant]
     Indication: PROPHYLAXIS
     Dosage: STRENGHT: 3MG/2ML, 3 MG, PRN
     Route: 042
     Dates: start: 20170726, end: 20170915
  11. CANCIDAS [Concomitant]
     Active Substance: CASPOFUNGIN ACETATE
     Indication: INFECTION PROPHYLAXIS
     Dosage: 70 MILLIGRAM, QD (ONCE DAILY)
     Route: 042
     Dates: start: 20170821, end: 20170821
  12. CRAVIT [Concomitant]
     Active Substance: LEVOFLOXACIN
     Indication: INFECTION PROPHYLAXIS
     Dosage: 500 MILLIGRAM, QD
     Route: 048
     Dates: start: 20170802, end: 20170902
  13. CANCIDAS [Concomitant]
     Active Substance: CASPOFUNGIN ACETATE
     Indication: INFECTION PROPHYLAXIS
     Dosage: 50 MILLIGRAM, QD
     Route: 042
     Dates: start: 20170822, end: 20170909
  14. FLAGYL [Concomitant]
     Active Substance: METRONIDAZOLE\METRONIDAZOLE HYDROCHLORIDE
     Indication: INFECTION PROPHYLAXIS
     Dosage: 500 MILLIGRAM, TID
     Route: 042
     Dates: start: 20170821, end: 20170906
  15. VIDAZA [Concomitant]
     Active Substance: AZACITIDINE
     Dosage: 125 MILLIGRAM, QD
     Route: 058
     Dates: start: 20170824, end: 20170827
  16. DICLOMED (DICLOFENAC) [Concomitant]
     Indication: INFECTION PROPHYLAXIS
     Dosage: FORMULATION: SOLUTION, 200 MILLILITER, PRN
     Route: 061
     Dates: start: 20170821, end: 20170821
  17. MAXIPIME [Concomitant]
     Active Substance: CEFEPIME HYDROCHLORIDE
     Indication: INFECTION PROPHYLAXIS
     Dosage: 2 GRAM, TID
     Route: 042
     Dates: start: 20170821, end: 20170906

REACTIONS (4)
  - Pain in jaw [Recovered/Resolved]
  - Hypophosphataemia [Recovered/Resolved]
  - Bronchopulmonary aspergillosis [Fatal]
  - Hepatic enzyme increased [Recovered/Resolved]

NARRATIVE: CASE EVENT DATE: 20170823
